FAERS Safety Report 6309800-4 (Version None)
Quarter: 2009Q3

REPORT INFORMATION
  Report Type: 
  Country: None (occurrence: None)
  Receive Date: 20090814
  Receipt Date: 20090804
  Transmission Date: 20100115
  Serious: Yes (Other)
  Sender: FDA-Public Use
  Company Number: US-ELI_LILLY_AND_COMPANY-US200908001145

PATIENT
  Age: 43 Year
  Sex: Male

DRUGS (5)
  1. STRATTERA [Suspect]
     Dosage: 60 MG, UNKNOWN
     Route: 065
     Dates: start: 20070801
  2. ADDERALL 10 [Concomitant]
     Dosage: UNK, UNKNOWN
     Route: 065
  3. WELLBUTRIN SR [Concomitant]
     Dosage: UNK, UNKNOWN
     Route: 065
  4. VOLTAREN [Concomitant]
     Dosage: UNK, UNKNOWN
     Route: 065
  5. KEFLIN [Concomitant]
     Dosage: UNK, UNKNOWN
     Route: 065

REACTIONS (3)
  - ALANINE AMINOTRANSFERASE INCREASED [None]
  - ASPARTATE AMINOTRANSFERASE INCREASED [None]
  - HEPATIC STEATOSIS [None]
